FAERS Safety Report 8976902 (Version 4)
Quarter: 2013Q1

REPORT INFORMATION
  Report Type: Report from Study
  Country: JP (occurrence: JP)
  Receive Date: 20121220
  Receipt Date: 20130227
  Transmission Date: 20140127
  Serious: Yes (Hospitalization)
  Sender: FDA-Public Use
  Company Number: JP-ACTELION-A-CH2012-74131

PATIENT
  Age: 1 Year
  Sex: Male
  Weight: 11.1 kg

DRUGS (4)
  1. ZAVESCA [Suspect]
     Indication: NIEMANN-PICK DISEASE
     Dosage: 50 MG, QD
     Route: 048
     Dates: start: 20120612, end: 20120618
  2. ZAVESCA [Suspect]
     Dosage: 75 MG, QD
     Route: 048
     Dates: start: 20120619, end: 20120625
  3. ZAVESCA [Suspect]
     Dosage: 100 MG, QD
     Route: 048
     Dates: start: 20120626, end: 20121215
  4. ZAVESCA [Suspect]
     Dosage: 100 MG, QD
     Route: 048
     Dates: start: 20121222

REACTIONS (11)
  - Exanthema subitum [Recovered/Resolved]
  - Pyrexia [Recovered/Resolved]
  - Cough [Recovered/Resolved]
  - Rash [Recovered/Resolved]
  - Pancytopenia [Recovered/Resolved]
  - Platelet count decreased [Recovered/Resolved]
  - White blood cell count decreased [Recovered/Resolved]
  - Haemoglobin decreased [Recovered/Resolved]
  - Diarrhoea [Recovering/Resolving]
  - Drug intolerance [Recovered/Resolved]
  - Vomiting [Recovered/Resolved]
